FAERS Safety Report 18024727 (Version 1)
Quarter: 2020Q3

REPORT INFORMATION
  Report Type: Spontaneous
  Country: US (occurrence: US)
  Receive Date: 20200714
  Receipt Date: 20200714
  Transmission Date: 20201103
  Serious: Yes (Hospitalization)
  Sender: FDA-Public Use
  Company Number: None

PATIENT
  Age: 94 Year
  Sex: Male
  Weight: 72.57 kg

DRUGS (1)
  1. IBUPROFEN (IBUPROFEN 200MG TAB) [Suspect]
     Active Substance: IBUPROFEN
     Dates: start: 20200301, end: 20200306

REACTIONS (4)
  - Blood creatinine increased [None]
  - Blood urea increased [None]
  - Nephropathy [None]
  - Acute kidney injury [None]

NARRATIVE: CASE EVENT DATE: 20200306
